FAERS Safety Report 8876536 (Version 1)
Quarter: 2012Q4

REPORT INFORMATION
  Report Type: 
  Country: DE (occurrence: DE)
  Receive Date: 20121030
  Receipt Date: 20121030
  Transmission Date: 20130627
  Serious: Yes (Other)
  Sender: FDA-Public Use
  Company Number: DE-BAXTER-2012BAX020555

PATIENT
  Age: 16 Year
  Sex: Male

DRUGS (1)
  1. FEIBA NF [Suspect]
     Indication: HEMOPHILIA A WITH ANTI FACTOR VIII
     Route: 065

REACTIONS (1)
  - Implant site thrombosis [Unknown]
